FAERS Safety Report 24595384 (Version 2)
Quarter: 2024Q4

REPORT INFORMATION
  Report Type: Spontaneous
  Country: US (occurrence: US)
  Receive Date: 20241109
  Receipt Date: 20241114
  Transmission Date: 20250115
  Serious: Yes (Hospitalization, Other)
  Sender: ABBVIE
  Company Number: US-ABBVIE-5989539

PATIENT
  Age: 63 Year
  Sex: Female
  Weight: 113.39 kg

DRUGS (2)
  1. HUMIRA [Suspect]
     Active Substance: ADALIMUMAB
     Indication: Crohn^s disease
     Dosage: FORM STRENGTH: 40 MILLIGRAM
     Route: 058
     Dates: start: 2016
  2. METOPROLOL [Concomitant]
     Active Substance: METOPROLOL
     Indication: Hypertension
     Route: 065

REACTIONS (7)
  - Leukaemia [Recovered/Resolved]
  - Full blood count increased [Recovered/Resolved]
  - Arthritis [Unknown]
  - Chronic kidney disease [Not Recovered/Not Resolved]
  - Poor quality product administered [Unknown]
  - Product storage error [Unknown]
  - Abdominal pain upper [Recovered/Resolved]

NARRATIVE: CASE EVENT DATE: 20170101
